FAERS Safety Report 8349364-7 (Version None)
Quarter: 2012Q2

REPORT INFORMATION
  Report Type: 
  Country: None (occurrence: None)
  Receive Date: 20120508
  Receipt Date: 20120423
  Transmission Date: 20120825
  Serious: Yes (Other)
  Sender: FDA-Public Use
  Company Number: DSJ-2012-07722

PATIENT
  Age: 76 Year
  Sex: Female

DRUGS (5)
  1. BENICAR HCT [Suspect]
     Indication: HYPERTENSION
     Dosage: 40 /12.5 MG (1 IN 1 D), PER ORAL
     Route: 048
     Dates: start: 20120210
  2. SERTRALINE HYDROCHLORIDE [Concomitant]
  3. ACETYLSALICYLIC ACID/ALUMINUM GLYCINATE/MAGNESIUM CARBONATE) [Concomitant]
  4. ROSUVASTATIN [Concomitant]
  5. ATENOLOL [Concomitant]

REACTIONS (2)
  - BENIGN NEOPLASM [None]
  - BLOOD PRESSURE INCREASED [None]
